FAERS Safety Report 24741906 (Version 1)
Quarter: 2024Q4

REPORT INFORMATION
  Report Type: Spontaneous
  Country: MY (occurrence: MY)
  Receive Date: 20241217
  Receipt Date: 20241217
  Transmission Date: 20250115
  Serious: Yes (Other)
  Sender: CIPLA
  Company Number: MY-CIPLA LTD.-2024MY14611

PATIENT

DRUGS (1)
  1. VALGANCICLOVIR [Suspect]
     Active Substance: VALGANCICLOVIR
     Indication: Cytomegalovirus infection
     Dosage: UNK, BID (15 MG PER KG TWICE DAILY)
     Route: 048

REACTIONS (2)
  - Hepatitis [Unknown]
  - Neutropenia [Unknown]
